FAERS Safety Report 10452060 (Version 1)
Quarter: 2014Q3

REPORT INFORMATION
  Report Type: Spontaneous
  Country: US (occurrence: None)
  Receive Date: 20140912
  Receipt Date: 20140912
  Transmission Date: 20150326
  Serious: Yes (Death, Hospitalization)
  Sender: FDA-Public Use
  Company Number: None

PATIENT
  Age: 70 Year
  Sex: Female
  Weight: 79.7 kg

DRUGS (2)
  1. DAUNORUBICIN [Suspect]
     Active Substance: DAUNORUBICIN
     Dates: end: 20131010
  2. CYTARABINE. [Suspect]
     Active Substance: CYTARABINE
     Dates: end: 20131010

REACTIONS (1)
  - Large intestinal obstruction [None]

NARRATIVE: CASE EVENT DATE: 20131013
